FAERS Safety Report 5218132-7 (Version None)
Quarter: 2007Q1

REPORT INFORMATION
  Report Type: 
  Country: None (occurrence: None)
  Receive Date: 20061130
  Receipt Date: 20060824
  Transmission Date: 20070707
  Serious: Yes (Other)
  Sender: FDA-Public Use
  Company Number: US200609001527

PATIENT
  Sex: Female
  Weight: 58 kg

DRUGS (4)
  1. ZYPREXA [Suspect]
     Dates: start: 19980101, end: 20060101
  2. SEROQUEL  /UNK/ (QUETIAPINE FUMARATE) [Concomitant]
  3. CELEXA [Concomitant]
  4. SINEQUAN [Concomitant]

REACTIONS (3)
  - DIABETES MELLITUS [None]
  - HYPOGLYCAEMIA [None]
  - PANCREATITIS [None]
